FAERS Safety Report 4371604-X (Version None)
Quarter: 2004Q2

REPORT INFORMATION
  Report Type: 
  Country: None (occurrence: None)
  Receive Date: 20040601
  Receipt Date: 20040512
  Transmission Date: 20050107
  Serious: Yes (Hospitalization)
  Sender: FDA-Public Use
  Company Number: 20040500306

PATIENT
  Age: 53 Year
  Sex: Female

DRUGS (3)
  1. MORPHINE [Suspect]
     Indication: PAIN
     Dates: end: 20040101
  2. METHADONE HCL [Concomitant]
  3. SKELAXIN [Concomitant]

REACTIONS (7)
  - CATHETER RELATED COMPLICATION [None]
  - CATHETER SITE OEDEMA [None]
  - CEREBROSPINAL FLUID LEAKAGE [None]
  - FISTULA [None]
  - MEDICAL DEVICE DISCOMFORT [None]
  - PROCEDURAL SITE REACTION [None]
  - SEROMA [None]
